FAERS Safety Report 5233177-9 (Version None)
Quarter: 2007Q1

REPORT INFORMATION
  Report Type: 
  Country: None (occurrence: None)
  Receive Date: 20070207
  Receipt Date: 20070129
  Transmission Date: 20070707
  Serious: Yes (Other)
  Sender: FDA-Public Use
  Company Number: JP-PFIZER INC-2007007990

PATIENT
  Age: 43 Year
  Sex: Male

DRUGS (7)
  1. GABAPEN [Suspect]
     Indication: EPILEPSY
     Dosage: DAILY DOSE:1200MG-FREQ:DAILY
     Route: 048
     Dates: start: 20061124, end: 20070124
  2. RIVOTRIL [Concomitant]
     Dosage: DAILY DOSE:3MG-FREQ:DAILY
     Route: 048
  3. DEPAKENE [Concomitant]
     Route: 048
     Dates: start: 20061124
  4. TEGRETOL [Concomitant]
     Route: 048
     Dates: start: 20061124
  5. CERCINE [Concomitant]
     Indication: INSOMNIA
     Dosage: DAILY DOSE:6MG-FREQ:DAILY
     Dates: start: 20061124
  6. ALBUTEROL [Concomitant]
     Indication: ASTHMA
     Dosage: DAILY DOSE:400MCG-FREQ:DAILY
     Route: 055
     Dates: start: 20060616
  7. QVAR 40 [Concomitant]
     Indication: ASTHMA
     Dosage: DAILY DOSE:200MCG-FREQ:DAILY
     Route: 055
     Dates: start: 20060428

REACTIONS (2)
  - CONDITION AGGRAVATED [None]
  - EPILEPSY [None]
